FAERS Safety Report 15289273 (Version 1)
Quarter: 2018Q3

REPORT INFORMATION
  Report Type: Spontaneous
  Country: US (occurrence: US)
  Receive Date: 20180803
  Receipt Date: 20180803
  Transmission Date: 20181010
  Serious: Yes (Hospitalization)
  Sender: FDA-Public Use
  Company Number: None

PATIENT
  Age: 84 Year
  Sex: Female

DRUGS (10)
  1. AMLODIPINE [Concomitant]
     Active Substance: AMLODIPINE BESYLATE
  2. METFORMIN 500MG [Concomitant]
     Active Substance: METFORMIN HYDROCHLORIDE
  3. METOPROLOL SUCCINATE 50MG [Concomitant]
     Active Substance: METOPROLOL SUCCINATE
  4. PRAVASTATIN. [Concomitant]
     Active Substance: PRAVASTATIN
  5. CYANOCOBALAMIN 1000MCG [Concomitant]
  6. QUETIAPINE 25MG [Concomitant]
     Active Substance: QUETIAPINE
  7. FORTEO [Suspect]
     Active Substance: TERIPARATIDE
     Indication: OSTEOPOROSIS
     Route: 058
     Dates: start: 20180117
  8. LEVEMIR [Concomitant]
     Active Substance: INSULIN DETEMIR
  9. VITAMIN D 50,000 UNITS [Concomitant]
  10. LORAZEPAM. [Concomitant]
     Active Substance: LORAZEPAM

REACTIONS (4)
  - Fungal infection [None]
  - Urinary tract infection [None]
  - Product storage error [None]
  - Drug dose omission [None]

NARRATIVE: CASE EVENT DATE: 20180725
